FAERS Safety Report 16958181 (Version 8)
Quarter: 2020Q1

REPORT INFORMATION
  Report Type: Report from Study
  Country: CA (occurrence: CA)
  Receive Date: 20191024
  Receipt Date: 20200129
  Transmission Date: 20200409
  Serious: Yes (Hospitalization, Other)
  Sender: FDA-Public Use
  Company Number: CA-BAYER-2019-159774

PATIENT
  Age: 71 Year
  Sex: Female

DRUGS (2)
  1. ADEMPAS [Suspect]
     Active Substance: RIOCIGUAT
     Indication: PULMONARY HYPERTENSION
     Dosage: 1.5 MG, TID
     Dates: start: 20190715, end: 20191001
  2. ADEMPAS [Suspect]
     Active Substance: RIOCIGUAT
     Indication: PULMONARY HYPERTENSION
     Dosage: 1.5 MG, TID
     Dates: start: 20191018

REACTIONS (27)
  - Sepsis [Not Recovered/Not Resolved]
  - Chest pain [Recovered/Resolved]
  - Pneumonia [Not Recovered/Not Resolved]
  - Escherichia infection [None]
  - Dyspnoea [Not Recovered/Not Resolved]
  - Blood pressure abnormal [Unknown]
  - Blood pressure abnormal [Not Recovered/Not Resolved]
  - Blood pressure systolic decreased [None]
  - Blood pressure diastolic decreased [Unknown]
  - Dyspepsia [Unknown]
  - Blood pressure diastolic decreased [Not Recovered/Not Resolved]
  - Dyspepsia [None]
  - Sepsis [Recovered/Resolved]
  - Dyspnoea exertional [Not Recovered/Not Resolved]
  - Fatigue [Not Recovered/Not Resolved]
  - Diarrhoea [Not Recovered/Not Resolved]
  - Blood pressure diastolic decreased [Recovering/Resolving]
  - Cellulitis [None]
  - Hospitalisation [Unknown]
  - Decreased activity [None]
  - Chest discomfort [Recovered/Resolved]
  - Diarrhoea [Recovered/Resolved]
  - Hiatus hernia [None]
  - Malignant melanoma [Recovering/Resolving]
  - Blood pressure fluctuation [Not Recovered/Not Resolved]
  - Rehabilitation therapy [None]
  - General physical health deterioration [None]

NARRATIVE: CASE EVENT DATE: 2019
